FAERS Safety Report 10866496 (Version 1)
Quarter: 2015Q1

REPORT INFORMATION
  Report Type: Spontaneous
  Country: US (occurrence: None)
  Receive Date: 20150220
  Receipt Date: 20150220
  Transmission Date: 20150721
  Serious: Yes (Death)
  Sender: FDA-Public Use
  Company Number: None

PATIENT
  Age: 67 Year
  Sex: Male
  Weight: 92.53 kg

DRUGS (11)
  1. OMEPRAZOLE. [Concomitant]
     Active Substance: OMEPRAZOLE
  2. CIPRO [Concomitant]
     Active Substance: CIPROFLOXACIN HYDROCHLORIDE
  3. DEXAMETHASONE. [Concomitant]
     Active Substance: DEXAMETHASONE
  4. DOCUSATE SODIUM. [Concomitant]
     Active Substance: DOCUSATE SODIUM
  5. CISPLATIN. [Suspect]
     Active Substance: CISPLATIN
     Route: 042
     Dates: start: 20150123
  6. CABAZITAXEL [Suspect]
     Active Substance: CABAZITAXEL
     Indication: SQUAMOUS CELL CARCINOMA OF THE TONGUE
     Route: 042
     Dates: start: 20150123
  7. VIAGRA [Concomitant]
     Active Substance: SILDENAFIL CITRATE
  8. ONDANSETRON [Concomitant]
     Active Substance: ONDANSETRON
  9. FLUOROURACIL. [Suspect]
     Active Substance: FLUOROURACIL
     Route: 042
  10. ATORVASTATIN [Concomitant]
     Active Substance: ATORVASTATIN
  11. PERCOCET [Concomitant]
     Active Substance: ACETAMINOPHEN\OXYCODONE HYDROCHLORIDE

REACTIONS (13)
  - Hypoxia [None]
  - Supraventricular tachycardia [None]
  - Dyspnoea [None]
  - Cough [None]
  - Hypotension [None]
  - Cardiac arrest [None]
  - Pneumothorax [None]
  - Pleural effusion [None]
  - Empyema [None]
  - Purulence [None]
  - Agitation [None]
  - Respiratory failure [None]
  - Tachycardia [None]

NARRATIVE: CASE EVENT DATE: 20150218
